FAERS Safety Report 4600399-7 (Version None)
Quarter: 2005Q1

REPORT INFORMATION
  Report Type: 
  Country: None (occurrence: None)
  Receive Date: 20050304
  Receipt Date: 20050218
  Transmission Date: 20050727
  Serious: Yes (Death, Hospitalization)
  Sender: FDA-Public Use
  Company Number: Q05-003

PATIENT
  Age: 81 Year
  Sex: Female
  Weight: 56 kg

DRUGS (11)
  1. QUADRAMET [Suspect]
     Indication: METASTASES TO BONE
     Dosage: 56.2MCI I.V. PORT-A-CATH
     Route: 042
     Dates: start: 20041223
  2. VERAPERIL [Concomitant]
  3. FUROSEMIDE [Concomitant]
  4. POTASSIUM CHLORIDE [Concomitant]
  5. PROTONIX [Concomitant]
  6. CONTIN [Concomitant]
  7. LEVOTHYROXINE [Concomitant]
  8. DURAGESIC-100 [Concomitant]
  9. AREDIA [Concomitant]
  10. ARANESP [Concomitant]
  11. WARFARIN SODIUM [Concomitant]

REACTIONS (8)
  - ANAEMIA [None]
  - ANOREXIA [None]
  - BACK PAIN [None]
  - CHEST PAIN [None]
  - DYSPNOEA [None]
  - FATIGUE [None]
  - NAUSEA [None]
  - NIGHT SWEATS [None]
